FAERS Safety Report 4699941-X (Version None)
Quarter: 2005Q2

REPORT INFORMATION
  Report Type: 
  Country: None (occurrence: None)
  Receive Date: 20050623
  Receipt Date: 20050606
  Transmission Date: 20051028
  Serious: Yes (Life-Threatening, Hospitalization)
  Sender: FDA-Public Use
  Company Number: REM_00123_2005

PATIENT
  Age: 38 Year
  Sex: Female
  Weight: 128 kg

DRUGS (6)
  1. REMODULIN [Suspect]
     Indication: PULMONARY HYPERTENSION
     Dosage: 14 NG/KG/MIN CONTINUOUS IV
     Route: 042
     Dates: start: 20050513
  2. POTASSIUM CHLORIDE [Concomitant]
  3. TYLENOL PM, EXTRA STRENGTH [Concomitant]
  4. LASIX [Concomitant]
  5. LEVOTHYROXINE [Concomitant]
  6. OXYGEN SUPPLEMENT [Concomitant]

REACTIONS (9)
  - CATHETER SITE HAEMORRHAGE [None]
  - EPISTAXIS [None]
  - HAEMODYNAMIC INSTABILITY [None]
  - HYPOTENSION [None]
  - PULMONARY ARTERIAL PRESSURE INCREASED [None]
  - RECTAL HAEMORRHAGE [None]
  - RESPIRATORY DISTRESS [None]
  - SEPSIS [None]
  - THROMBOCYTOPENIA [None]
